FAERS Safety Report 7899424-X (Version None)
Quarter: 2011Q4

REPORT INFORMATION
  Report Type: 
  Country: None (occurrence: None)
  Receive Date: 20111107
  Receipt Date: 20110914
  Transmission Date: 20120403
  Serious: No
  Sender: FDA-Public Use
  Company Number: US-AMGEN-USASP2011047331

PATIENT
  Sex: Male

DRUGS (13)
  1. VITAMIN B12                        /00056201/ [Concomitant]
     Dosage: 2000 MUG, UNK
     Route: 048
  2. SUPER B COMPL [Concomitant]
     Route: 048
  3. BIOFLEX                            /00808401/ [Concomitant]
     Route: 048
  4. METHOTREXATE [Concomitant]
     Dosage: 2.5 MG, UNK
     Route: 048
  5. PREDNISONE [Concomitant]
     Dosage: 5 MG, UNK
     Route: 048
  6. FLOMAX [Concomitant]
     Dosage: 0.4 MG, UNK
     Route: 048
  7. LEVOTHYROXINE SODIUM [Concomitant]
     Dosage: 112 MUG, UNK
     Route: 048
  8. ASPIRIN [Concomitant]
     Dosage: 81 MG, UNK
     Route: 048
  9. ENBREL [Suspect]
     Indication: PRODUCT USED FOR UNKNOWN INDICATION
     Dosage: 50 MG, QWK
     Route: 058
  10. FOLIC ACID [Concomitant]
     Dosage: 1 MG, UNK
     Route: 048
  11. OMEPRAZOLE [Concomitant]
     Dosage: 20 MG, UNK
     Route: 048
  12. ATENOLOL [Concomitant]
     Dosage: 25 MG, UNK
     Route: 048
  13. CENTRUM SILVER                     /01292501/ [Concomitant]
     Route: 048

REACTIONS (3)
  - NASAL CONGESTION [None]
  - DRY EYE [None]
  - DYSURIA [None]
